FAERS Safety Report 23906537 (Version 1)
Quarter: 2024Q2

REPORT INFORMATION
  Report Type: Spontaneous
  Country: CN (occurrence: CN)
  Receive Date: 20240528
  Receipt Date: 20240528
  Transmission Date: 20240715
  Serious: Yes (Hospitalization)
  Sender: FDA-Public Use
  Company Number: CN-CHEPLA-2024006509

PATIENT
  Age: 31 Year
  Sex: Male

DRUGS (5)
  1. GANCICLOVIR [Suspect]
     Active Substance: GANCICLOVIR
     Indication: Cytomegalovirus infection
     Dosage: 250MG Q12H?DAILY DOSE: 500 MILLIGRAM
     Route: 042
  2. MEROPENEM [Concomitant]
     Active Substance: MEROPENEM
     Indication: Abdominal pain
     Dosage: 1.0G Q8H FOR 7 DAYS?DAILY DOSE: 3 GRAM
     Route: 042
  3. MEROPENEM [Concomitant]
     Active Substance: MEROPENEM
     Indication: Haematochezia
     Dosage: 1.0G Q8H FOR 7 DAYS?DAILY DOSE: 3 GRAM
     Route: 042
  4. VORICONAZOLE [Concomitant]
     Active Substance: VORICONAZOLE
     Indication: Haematochezia
     Dosage: 200MG Q12H FOR 10 DAYS?DAILY DOSE: 400 MILLIGRAM
     Route: 042
  5. VORICONAZOLE [Concomitant]
     Active Substance: VORICONAZOLE
     Indication: Abdominal pain
     Dosage: 200MG Q12H FOR 10 DAYS?DAILY DOSE: 400 MILLIGRAM
     Route: 042

REACTIONS (1)
  - Haematochezia [Recovered/Resolved]
